FAERS Safety Report 13919477 (Version 1)
Quarter: 2017Q3

REPORT INFORMATION
  Report Type: Report from Study
  Country: US (occurrence: US)
  Receive Date: 20170830
  Receipt Date: 20170830
  Transmission Date: 20171127
  Serious: Yes (Hospitalization)
  Sender: FDA-Public Use
  Company Number: US-ROCHE-1973452

PATIENT
  Age: 62 Year
  Sex: Female
  Weight: 79.8 kg

DRUGS (27)
  1. DIPHENOXYLATE W ATROPINE [Concomitant]
     Dosage: OF 2.5-0.025 MG
     Route: 048
     Dates: start: 20170721
  2. LASIX [Concomitant]
     Active Substance: FUROSEMIDE
     Dosage: 1 DOSE
     Route: 065
  3. CANDESARTAN. [Concomitant]
     Active Substance: CANDESARTAN
     Route: 065
  4. TRASTUZUMAB. [Suspect]
     Active Substance: TRASTUZUMAB
     Indication: LEFT VENTRICULAR DYSFUNCTION
     Dosage: MAINTENANCE DOSE
     Route: 042
     Dates: start: 20170316
  5. TRASTUZUMAB. [Suspect]
     Active Substance: TRASTUZUMAB
     Route: 042
     Dates: start: 20161007
  6. VITAMIN B6 [Concomitant]
     Active Substance: PYRIDOXINE HYDROCHLORIDE
     Route: 065
     Dates: start: 20170721
  7. DOXORUBICIN [Concomitant]
     Active Substance: DOXORUBICIN
     Indication: BREAST CANCER METASTATIC
  8. CARVEDILOL. [Concomitant]
     Active Substance: CARVEDILOL
     Route: 065
  9. PERIDIN-C [Concomitant]
     Route: 048
     Dates: start: 20170721
  10. 5-FLUOROURACIL [Concomitant]
     Active Substance: FLUOROURACIL
     Route: 065
     Dates: start: 20150129, end: 20160630
  11. OXALIPLATIN. [Concomitant]
     Active Substance: OXALIPLATIN
     Route: 065
     Dates: start: 20150129, end: 20160630
  12. PERTUZUMAB. [Suspect]
     Active Substance: PERTUZUMAB
     Indication: LEFT VENTRICULAR DYSFUNCTION
     Dosage: MAINTENANCE DOSE
     Route: 042
     Dates: start: 20170316
  13. PERTUZUMAB. [Suspect]
     Active Substance: PERTUZUMAB
     Indication: HER-2 POSITIVE BREAST CANCER
     Dosage: LOADING DOSE?MOST RECENT DOSE ON: 20/JUL/2017
     Route: 042
     Dates: start: 20170223
  14. PERTUZUMAB. [Suspect]
     Active Substance: PERTUZUMAB
     Route: 042
     Dates: start: 20161007
  15. CARVEDILOL. [Concomitant]
     Active Substance: CARVEDILOL
     Route: 065
     Dates: start: 20170721
  16. LETROZOLE. [Concomitant]
     Active Substance: LETROZOLE
  17. FUROSEMIDE. [Concomitant]
     Active Substance: FUROSEMIDE
     Route: 042
  18. COMPAZINE [Concomitant]
     Active Substance: PROCHLORPERAZINE MALEATE
     Route: 065
     Dates: start: 20170721
  19. VITAMIN B12 [Concomitant]
     Active Substance: CYANOCOBALAMIN
     Route: 065
     Dates: start: 20170721
  20. VINCRISTINE [Concomitant]
     Active Substance: VINCRISTINE
     Indication: BREAST CANCER METASTATIC
  21. EFFEXOR [Concomitant]
     Active Substance: VENLAFAXINE HYDROCHLORIDE
     Indication: HOT FLUSH
     Route: 065
     Dates: start: 20170721
  22. TAMOXIFEN [Concomitant]
     Active Substance: TAMOXIFEN
     Route: 048
     Dates: start: 20170721
  23. VITAMIN E [Concomitant]
     Active Substance: .ALPHA.-TOCOPHEROL
     Route: 065
     Dates: start: 20170721
  24. IMODIUM A-D [Concomitant]
     Active Substance: LOPERAMIDE HYDROCHLORIDE
     Dosage: OF 2 MG
     Route: 048
     Dates: start: 20170721
  25. PREDNISOLONE. [Concomitant]
     Active Substance: PREDNISOLONE
     Indication: BREAST CANCER METASTATIC
  26. TRASTUZUMAB. [Suspect]
     Active Substance: TRASTUZUMAB
     Indication: HER-2 POSITIVE BREAST CANCER
     Dosage: LOADING DOSE?MOST RECENT DOSE ON: 20/JUL/2017
     Route: 042
     Dates: start: 20170223
  27. LOMOTIL [Concomitant]
     Active Substance: ATROPINE SULFATE\DIPHENOXYLATE HYDROCHLORIDE
     Route: 048
     Dates: start: 20170721

REACTIONS (4)
  - Ejection fraction decreased [Unknown]
  - Left ventricular dysfunction [Unknown]
  - Cardiac failure [Unknown]
  - Dyspnoea [Unknown]

NARRATIVE: CASE EVENT DATE: 20170801
